FAERS Safety Report 13037345 (Version 1)
Quarter: 2016Q4

REPORT INFORMATION
  Report Type: Spontaneous
  Country: GB (occurrence: GB)
  Receive Date: 20161216
  Receipt Date: 20161216
  Transmission Date: 20170207
  Serious: Yes (Other)
  Sender: FDA-Public Use
  Company Number: GB-REGENERON PHARMACEUTICALS, INC.-2016-22945

PATIENT

DRUGS (6)
  1. EYLEA [Suspect]
     Active Substance: AFLIBERCEPT
     Indication: NEOVASCULAR AGE-RELATED MACULAR DEGENERATION
     Dosage: FIRST EYLEA INJECTION
     Route: 031
     Dates: start: 20150106, end: 20150106
  2. EYLEA [Suspect]
     Active Substance: AFLIBERCEPT
     Dosage: LAST EYLEA INJECTION PRIOR TO EVENT ONSET, TOTAL OF 3 INJECTION WITHIN THE LAST 6 MONTHS
     Route: 031
     Dates: start: 20160720, end: 20160720
  3. CHLORAMPHENICOL [Concomitant]
     Active Substance: CHLORAMPHENICOL
     Indication: INFECTION PROPHYLAXIS
  4. POLYVIDONE [Concomitant]
     Indication: INFECTION PROPHYLAXIS
  5. CHLORHEXIDINE [Concomitant]
     Active Substance: CHLORHEXIDINE
     Indication: INFECTION PROPHYLAXIS
  6. EYLEA [Suspect]
     Active Substance: AFLIBERCEPT
     Dosage: LAST EYLEA INJECTION AT TIME OF REPORTING
     Route: 031
     Dates: start: 20160831, end: 20160831

REACTIONS (2)
  - Blindness [Not Recovered/Not Resolved]
  - Hypopyon [Recovered/Resolved]

NARRATIVE: CASE EVENT DATE: 2016
